FAERS Safety Report 7137717-4 (Version None)
Quarter: 2010Q4

REPORT INFORMATION
  Report Type: 
  Country: None (occurrence: None)
  Receive Date: 20101206
  Receipt Date: 20101122
  Transmission Date: 20110411
  Serious: Yes (Hospitalization, Other)
  Sender: FDA-Public Use
  Company Number: PHHY2010PH79488

PATIENT
  Sex: Male

DRUGS (3)
  1. ALISKIREN/AMOLODIPINE BESYLATE/HYDROCHLOROTHIAZIDE [Suspect]
     Dosage: 300 MG, QD
     Dates: start: 20101104
  2. CLONIDINE [Concomitant]
     Dosage: 75 MG, BID
     Dates: start: 20090608
  3. METOPROLOL [Concomitant]
     Dosage: 50 MG, BID
     Dates: start: 20090608

REACTIONS (2)
  - BLOOD CREATININE INCREASED [None]
  - BLOOD PRESSURE INCREASED [None]
